FAERS Safety Report 8274817-X (Version None)
Quarter: 2012Q2

REPORT INFORMATION
  Report Type: 
  Country: None (occurrence: None)
  Receive Date: 20120409
  Receipt Date: 20120402
  Transmission Date: 20120825
  Serious: Yes (Other)
  Sender: FDA-Public Use
  Company Number: 1248240

PATIENT
  Age: 62 Year
  Sex: Male

DRUGS (5)
  1. FLUOROURACIL [Concomitant]
  2. DEXAMETHASONE SODIUM PHOSPHATE [Concomitant]
  3. IRINOTECAN HYDROCHLORIDE [Suspect]
     Indication: CHEMOTHERAPY
     Dosage: 290 MG MILLIGRAM(S), INTRAVENOUS
     Route: 042
     Dates: start: 20091103, end: 20100330
  4. LEUCOVORIN CALCIUM [Concomitant]
  5. ZOFRAN [Concomitant]

REACTIONS (2)
  - VOMITING [None]
  - THROAT TIGHTNESS [None]
